FAERS Safety Report 15410084 (Version 1)
Quarter: 2018Q3

REPORT INFORMATION
  Report Type: Spontaneous
  Country: CL (occurrence: CL)
  Receive Date: 20180921
  Receipt Date: 20180921
  Transmission Date: 20181010
  Serious: Yes (Other)
  Sender: FDA-Public Use
  Company Number: CL-AMGEN-CHLSP2018129567

PATIENT
  Age: 49 Year
  Sex: Female

DRUGS (1)
  1. ENBREL [Suspect]
     Active Substance: ETANERCEPT
     Indication: PRODUCT USED FOR UNKNOWN INDICATION
     Dosage: UNK
     Route: 065
     Dates: start: 20180701

REACTIONS (5)
  - Suicide attempt [Unknown]
  - Anxiety [Unknown]
  - Epistaxis [Unknown]
  - Thirst [Unknown]
  - Fatigue [Unknown]

NARRATIVE: CASE EVENT DATE: 20180811
